FAERS Safety Report 7131336-1 (Version None)
Quarter: 2010Q4

REPORT INFORMATION
  Report Type: 
  Country: None (occurrence: None)
  Receive Date: 20101201
  Receipt Date: 20101117
  Transmission Date: 20110411
  Serious: Yes (Death, Hospitalization)
  Sender: FDA-Public Use
  Company Number: US-ROCHE-736727

PATIENT
  Sex: Male
  Weight: 97.1 kg

DRUGS (15)
  1. BEVACIZUMAB [Suspect]
     Indication: NON-SMALL CELL LUNG CANCER
     Dosage: DAY 1 EVERY 15 DAYS
     Route: 042
     Dates: start: 20100703, end: 20100805
  2. BEVACIZUMAB [Suspect]
     Dosage: DAY 1 EVERY 15 DAYS
     Route: 042
     Dates: start: 20100826
  3. PACLITAXEL [Suspect]
     Indication: NON-SMALL CELL LUNG CANCER
     Route: 042
     Dates: start: 20100603, end: 20100805
  4. CARBOPLATIN [Suspect]
     Indication: NON-SMALL CELL LUNG CANCER
     Dosage: DOSE: 6 AUC
     Route: 042
     Dates: start: 20100603, end: 20100805
  5. REGLAN [Concomitant]
     Indication: NAUSEA
     Dosage: THERAPY WAS ONGOING
     Dates: end: 20100913
  6. DURAGESIC-100 [Concomitant]
     Indication: PAIN
  7. FINASTERIDE [Concomitant]
  8. GLYBURIDE [Concomitant]
  9. NORVASC [Concomitant]
  10. PROZAC [Concomitant]
  11. SIMVASTATIN [Concomitant]
  12. MILK OF MAGNESIA [Concomitant]
     Dates: start: 20100924
  13. DULCOLAX [Concomitant]
     Dates: start: 20100924
  14. SODIUM PHOSPHATES [Concomitant]
     Dates: start: 20100924
  15. LOVENOX [Concomitant]
     Dates: start: 20100924

REACTIONS (4)
  - DEHYDRATION [None]
  - DISORIENTATION [None]
  - MULTI-ORGAN FAILURE [None]
  - SEPSIS [None]
